FAERS Safety Report 25387068 (Version 1)
Quarter: 2025Q2

REPORT INFORMATION
  Report Type: Spontaneous
  Country: SE (occurrence: SE)
  Receive Date: 20250602
  Receipt Date: 20250602
  Transmission Date: 20250716
  Serious: Yes (Death, Other)
  Sender: APELLIS PHARMACEUTICALS
  Company Number: SE-BIOVITRUM-2025-SE-007657

PATIENT

DRUGS (1)
  1. PEGCETACOPLAN [Suspect]
     Active Substance: PEGCETACOPLAN
     Indication: Complement factor C3

REACTIONS (2)
  - Death [Fatal]
  - Intentional product misuse [Unknown]
